FAERS Safety Report 7816362-9 (Version None)
Quarter: 2011Q4

REPORT INFORMATION
  Report Type: 
  Country: None (occurrence: None)
  Receive Date: 20111017
  Receipt Date: 20111013
  Transmission Date: 20120403
  Serious: Yes (Hospitalization, Congenital Anomaly)
  Sender: FDA-Public Use
  Company Number: US-BIOGENIDEC-2011BI022977

PATIENT
  Sex: Female
  Weight: 2 kg

DRUGS (1)
  1. AVONEX [Suspect]
     Indication: MATERNAL EXPOSURE DURING PREGNANCY
     Route: 064
     Dates: start: 20100317, end: 20101123

REACTIONS (5)
  - OXYGEN SATURATION DECREASED [None]
  - SINGLE UMBILICAL ARTERY [None]
  - TEMPERATURE REGULATION DISORDER [None]
  - SMALL FOR DATES BABY [None]
  - BLOOD GLUCOSE FLUCTUATION [None]
